FAERS Safety Report 8321664-6 (Version None)
Quarter: 2012Q2

REPORT INFORMATION
  Report Type: 
  Country: None (occurrence: None)
  Receive Date: 20120430
  Receipt Date: 20120418
  Transmission Date: 20120825
  Serious: Yes (Death, Other)
  Sender: FDA-Public Use
  Company Number: PHHO2010US09989

PATIENT
  Age: 21 Year
  Sex: Male

DRUGS (2)
  1. AFINITOR [Suspect]
     Indication: HODGKIN'S DISEASE
     Dosage: 10 MG
     Dates: start: 20100503
  2. LBH589 [Suspect]
     Dosage: 20 MG
     Dates: start: 20100503

REACTIONS (6)
  - DIZZINESS [None]
  - VENTRICULAR EXTRASYSTOLES [None]
  - CIRCULATORY COLLAPSE [None]
  - CYANOSIS [None]
  - CARDIOPULMONARY FAILURE [None]
  - PAIN IN EXTREMITY [None]
